FAERS Safety Report 12178228 (Version 1)
Quarter: 2016Q1

REPORT INFORMATION
  Report Type: Spontaneous
  Country: US (occurrence: None)
  Receive Date: 20160314
  Receipt Date: 20160314
  Transmission Date: 20160526
  Serious: Yes (Disabling)
  Sender: FDA-Public Use
  Company Number: None

PATIENT
  Age: 44 Year
  Sex: Female
  Weight: 52.16 kg

DRUGS (6)
  1. MG [Concomitant]
     Active Substance: MAGNESIUM
  2. ASPIRIN. [Concomitant]
     Active Substance: ASPIRIN
  3. CA [Concomitant]
  4. NATURAL PROGESTERONE [Concomitant]
  5. BOTOX [Suspect]
     Active Substance: ONABOTULINUMTOXINA
     Indication: SKIN COSMETIC PROCEDURE
     Dates: start: 20160224
  6. B VITAMINS [Concomitant]
     Active Substance: CYANOCOBALAMIN\DEXPANTHENOL\NIACINAMIDE\PYRIDOXINE HYDROCHLORIDE\RIBOFLAVIN 5^-PHOSPHATE SODIUM\THIAMINE HYDROCHLORIDE\VITAMIN B COMPLEX

REACTIONS (13)
  - Fatigue [None]
  - Vision blurred [None]
  - Anxiety [None]
  - Muscular weakness [None]
  - Depressed level of consciousness [None]
  - Tension headache [None]
  - Muscle tightness [None]
  - Diplopia [None]
  - Asthenopia [None]
  - Dizziness [None]
  - Quality of life decreased [None]
  - Migraine [None]
  - Depression [None]

NARRATIVE: CASE EVENT DATE: 20160224
